FAERS Safety Report 8043589-6 (Version None)
Quarter: 2012Q1

REPORT INFORMATION
  Report Type: 
  Country: None (occurrence: None)
  Receive Date: 20120112
  Receipt Date: 20120110
  Transmission Date: 20120608
  Serious: Yes (Death, Life-Threatening, Hospitalization, Disabling, Other)
  Sender: FDA-Public Use
  Company Number: RU-ABBOTT-12P-251-0891253-00

PATIENT
  Age: 3 Year
  Sex: Female

DRUGS (1)
  1. SEVOFLURANE [Suspect]
     Indication: ANAESTHESIA
     Route: 055
     Dates: start: 20120109, end: 20120109

REACTIONS (3)
  - HYPERTHERMIA MALIGNANT [None]
  - ANURIA [None]
  - COMA [None]
